FAERS Safety Report 12187813 (Version 3)
Quarter: 2016Q2

REPORT INFORMATION
  Report Type: Report from Study
  Country: DE (occurrence: TW)
  Receive Date: 20160317
  Receipt Date: 20160505
  Transmission Date: 20160815
  Serious: Yes (Hospitalization)
  Sender: FDA-Public Use
  Company Number: DE-ACTELION-A-US2016-133155

PATIENT
  Age: 83 Year
  Sex: Female

DRUGS (2)
  1. VENTAVIS [Suspect]
     Active Substance: ILOPROST
     Indication: PULMONARY ARTERIAL HYPERTENSION
     Dosage: 3 AMP WITH 3 TO 4 TIMES A DAY
     Route: 055
     Dates: start: 20150505, end: 20160415
  2. VENTAVIS [Suspect]
     Active Substance: ILOPROST
     Dosage: UNK, TID
     Route: 055
     Dates: start: 2014

REACTIONS (4)
  - Somnolence [Recovered/Resolved]
  - Hepatic neoplasm [Unknown]
  - Dyspnoea [Recovered/Resolved]
  - Intentional product use issue [Unknown]
